FAERS Safety Report 21320230 (Version 1)
Quarter: 2022Q3

REPORT INFORMATION
  Report Type: Spontaneous
  Country: US (occurrence: US)
  Receive Date: 20220911
  Receipt Date: 20220911
  Transmission Date: 20221027
  Serious: No
  Sender: FDA-Public Use
  Company Number: US-SA-SAC20220908000748

PATIENT
  Sex: Female
  Weight: 58.967 kg

DRUGS (14)
  1. AUBAGIO [Suspect]
     Active Substance: TERIFLUNOMIDE
     Indication: Multiple sclerosis
     Dosage: 14 MG, DAILY
     Route: 048
     Dates: start: 201603
  2. DALFAMPRIDINE [Concomitant]
     Active Substance: DALFAMPRIDINE
  3. MAGNESIUM [Concomitant]
     Active Substance: MAGNESIUM
  4. MIRTAZAPINE [Concomitant]
     Active Substance: MIRTAZAPINE
  5. SELENIUM SULFIDE [Concomitant]
     Active Substance: SELENIUM SULFIDE
  6. OMEGAMINT [Concomitant]
  7. VITAMINS NOS [Concomitant]
     Active Substance: VITAMINS
  8. VITAMIN B12 [Concomitant]
     Active Substance: CYANOCOBALAMIN
  9. POTASSIUM CHLORIDE [Concomitant]
     Active Substance: POTASSIUM CHLORIDE
  10. OMEPRAZOLE [Concomitant]
     Active Substance: OMEPRAZOLE
  11. ALBUTEROL SULFATE [Concomitant]
     Active Substance: ALBUTEROL SULFATE
  12. VITAMIN D NOS [Concomitant]
     Active Substance: VITAMIN D NOS
  13. IRON [Concomitant]
     Active Substance: IRON
  14. DIETARY SUPPLEMENT [Concomitant]
     Active Substance: DIETARY SUPPLEMENT

REACTIONS (1)
  - Paranasal sinus discomfort [Unknown]
